FAERS Safety Report 7979646-X (Version None)
Quarter: 2011Q4

REPORT INFORMATION
  Report Type: 
  Country: None (occurrence: None)
  Receive Date: 20111214
  Receipt Date: 20111206
  Transmission Date: 20120403
  Serious: Yes (Life-Threatening, Other)
  Sender: FDA-Public Use
  Company Number: CA-ROCHE-800165

PATIENT
  Sex: Female
  Weight: 59.928 kg

DRUGS (6)
  1. XELODA [Concomitant]
     Indication: BREAST CANCER
     Dates: start: 20111001, end: 20111129
  2. ABRAXANE [Concomitant]
  3. CLODRONIC ACID [Concomitant]
     Dosage: DRUG REPORTED AS CONDRONATE
  4. RAMIPRIL [Concomitant]
     Dates: start: 20110826
  5. AVASTIN [Suspect]
     Indication: BREAST CANCER
     Dosage: DOSE 15MG/KG
     Route: 042
  6. CELEBREX [Concomitant]

REACTIONS (6)
  - DRUG INEFFECTIVE [None]
  - METASTASES TO LUNG [None]
  - EJECTION FRACTION DECREASED [None]
  - DISEASE PROGRESSION [None]
  - TACHYCARDIA [None]
  - METASTASES TO LIVER [None]
